FAERS Safety Report 8895742 (Version 4)
Quarter: 2013Q1

REPORT INFORMATION
  Report Type: Spontaneous
  Country: US (occurrence: US)
  Receive Date: 20121108
  Receipt Date: 20130128
  Transmission Date: 20140127
  Serious: Yes (Hospitalization, Other)
  Sender: FDA-Public Use
  Company Number: US-JNJFOC-20121016128

PATIENT
  Sex: Male
  Weight: 149.69 kg

DRUGS (13)
  1. SANDOZ FENTANYL TRANSDERMAL SYSTEM [Suspect]
     Indication: GASTRIC DISORDER
     Route: 062
  2. SANDOZ FENTANYL TRANSDERMAL SYSTEM [Suspect]
     Indication: GASTRIC DISORDER
     Route: 062
     Dates: start: 201005
  3. SANDOZ FENTANYL TRANSDERMAL SYSTEM [Suspect]
     Indication: BACK PAIN
     Route: 062
  4. SANDOZ FENTANYL TRANSDERMAL SYSTEM [Suspect]
     Indication: BACK PAIN
     Route: 062
     Dates: start: 201005
  5. DURAGESIC [Suspect]
     Indication: BACK PAIN
     Route: 062
     Dates: start: 20120315
  6. MORPHINE [Concomitant]
     Indication: BREAKTHROUGH PAIN
     Route: 048
     Dates: start: 2010
  7. LOTREL [Concomitant]
     Indication: HYPERTENSION
     Dosage: 10-20 MG
     Route: 048
  8. NEXIUM [Concomitant]
     Indication: GASTRIC DISORDER
     Route: 048
  9. LYRICA [Concomitant]
     Indication: NEURALGIA
     Route: 048
  10. CLONIDINE [Concomitant]
     Indication: HYPERTENSION
     Route: 065
  11. WELLBUTRIN [Concomitant]
     Indication: DEPRESSION
     Route: 065
  12. XANAX [Concomitant]
     Indication: DEPRESSION
     Route: 065
  13. PROZAC [Concomitant]
     Indication: PRODUCT USED FOR UNKNOWN INDICATION
     Route: 065

REACTIONS (7)
  - Suicide attempt [Recovered/Resolved]
  - Neuropathy peripheral [Recovering/Resolving]
  - Impaired driving ability [Recovered/Resolved]
  - Diplopia [Recovering/Resolving]
  - Anxiety [Not Recovered/Not Resolved]
  - Product quality issue [Recovered/Resolved]
  - Dysgraphia [Recovering/Resolving]
